FAERS Safety Report 5579309-4 (Version None)
Quarter: 2007Q4

REPORT INFORMATION
  Report Type: 
  Country: None (occurrence: None)
  Receive Date: 20071228
  Receipt Date: 20071203
  Transmission Date: 20080405
  Serious: Yes (Death)
  Sender: FDA-Public Use
  Company Number: DAB-2007-00012

PATIENT
  Age: 58 Year
  Sex: Male

DRUGS (1)
  1. PACLITAZEL INJECTION, USP, 6MG/ML (PACLITAXEL) [Suspect]
     Indication: ADENOID CYSTIC CARCINOMA
     Dosage: 1 IN 1 WEEKS
     Dates: start: 20050822, end: 20051214

REACTIONS (2)
  - DISEASE PROGRESSION [None]
  - THERAPEUTIC RESPONSE DECREASED [None]
